FAERS Safety Report 8828025 (Version 1)
Quarter: 2012Q4

REPORT INFORMATION
  Report Type: Report from Study
  Country: JP (occurrence: JP)
  Receive Date: 20121008
  Receipt Date: 20121008
  Transmission Date: 20130627
  Serious: Yes (Other)
  Sender: FDA-Public Use
  Company Number: PHHY2012JP087418

PATIENT
  Age: 60 Year
  Sex: Male

DRUGS (8)
  1. AMN107 [Suspect]
     Indication: CHRONIC MYELOID LEUKAEMIA
     Dosage: 400 mg, daily
     Route: 048
     Dates: start: 20090409, end: 20100505
  2. AMN107 [Suspect]
     Dosage: 800 mg, daily
     Route: 048
     Dates: start: 20100506, end: 20100530
  3. AMN107 [Suspect]
     Dosage: 400 mg, daily
     Route: 048
     Dates: start: 20100610, end: 20110622
  4. AMN107 [Suspect]
     Dosage: 600 mg, daily
     Route: 048
     Dates: start: 20110623
  5. TAKEPRON [Concomitant]
     Route: 048
     Dates: start: 20070911
  6. ALOSITOL [Concomitant]
     Dates: start: 20071127
  7. MEDET [Concomitant]
     Dates: start: 20080325
  8. FASTIC [Concomitant]
     Dates: start: 20080325

REACTIONS (1)
  - Blood glucose increased [Not Recovered/Not Resolved]
